FAERS Safety Report 8836551 (Version 1)
Quarter: 2012Q4

REPORT INFORMATION
  Report Type: Spontaneous
  Country: FR (occurrence: None)
  Receive Date: 20121009
  Receipt Date: 20121009
  Transmission Date: 20130627
  Serious: Yes (Hospitalization, Other)
  Sender: FDA-Public Use
  Company Number: NSR_00671_2012

PATIENT
  Age: 46 Year
  Sex: Male

DRUGS (27)
  1. BACLOFEN [Suspect]
     Indication: ALCOHOLISM
  2. BACLOFEN [Suspect]
     Indication: OFF LABEL USE
  3. BACLOFEN [Suspect]
     Indication: ALCOHOLISM
  4. BACLOFEN [Suspect]
     Indication: OFF LABEL USE
  5. BACLOFEN [Suspect]
     Indication: ALCOHOLISM
  6. BACLOFEN [Suspect]
     Indication: OFF LABEL USE
  7. BACLOFEN [Suspect]
     Indication: ALCOHOLISM
  8. BACLOFEN [Suspect]
     Indication: OFF LABEL USE
  9. BACLOFEN [Suspect]
     Indication: ALCOHOLISM
  10. BACLOFEN [Suspect]
     Indication: OFF LABEL USE
  11. BACLOFEN [Suspect]
     Indication: ALCOHOLISM
  12. BACLOFEN [Suspect]
     Indication: OFF LABEL USE
  13. BACLOFEN [Suspect]
     Indication: ALCOHOLISM
  14. BACLOFEN [Suspect]
     Indication: OFF LABEL USE
  15. BACLOFEN [Suspect]
     Indication: ALCOHOLISM
  16. BACLOFEN [Suspect]
     Indication: OFF LABEL USE
  17. BACLOFEN [Suspect]
     Indication: ALCOHOLISM
  18. BACLOFEN [Suspect]
     Indication: OFF LABEL USE
  19. BACLOFEN [Suspect]
     Indication: ALCOHOLISM
  20. BACLOFEN [Suspect]
     Indication: OFF LABEL USE
  21. BACLOFEN [Suspect]
     Indication: ALCOHOLISM
  22. BACLOFEN [Suspect]
     Indication: OFF LABEL USE
  23. ALCOHOL [Suspect]
     Indication: PRODUCT USED FOR UNKNOWN INDICATION
  24. ALCOHOL [Suspect]
     Indication: PRODUCT USED FOR UNKNOWN INDICATION
  25. MIRTAZAPINE [Concomitant]
  26. LORAZEPAM [Concomitant]
  27. ZOPICLONE [Concomitant]

REACTIONS (2)
  - Grand mal convulsion [None]
  - Alcohol interaction [None]
